FAERS Safety Report 8032321-8 (Version None)
Quarter: 2012Q1

REPORT INFORMATION
  Report Type: 
  Country: None (occurrence: None)
  Receive Date: 20120110
  Receipt Date: 20120104
  Transmission Date: 20120608
  Serious: Yes (Death)
  Sender: FDA-Public Use
  Company Number: US-SHIRE-ALL1-2012-00062

PATIENT
  Sex: Male

DRUGS (2)
  1. FOSRENOL [Suspect]
     Indication: RENAL FAILURE CHRONIC
     Dosage: 5000 MG, OTHER (1000 MG TABLET FIVE TIMES PER DAY)
     Route: 048
  2. FOSRENOL [Suspect]
     Indication: HYPERPHOSPHATAEMIA
     Dosage: 2500 MG, OTHER (500 MG TABLET FIVE TIMES PER DAY)
     Route: 048

REACTIONS (2)
  - OVERDOSE [None]
  - DEATH [None]
